FAERS Safety Report 8916588 (Version 1)
Quarter: 2012Q4

REPORT INFORMATION
  Report Type: 
  Country: FR (occurrence: FR)
  Receive Date: 20121120
  Receipt Date: 20121120
  Transmission Date: 20130627
  Serious: Yes (Death)
  Sender: FDA-Public Use
  Company Number: FR-009507513-1201USA03373

PATIENT
  Age: 65 Year
  Sex: Male
  Weight: 58 kg

DRUGS (8)
  1. EMEND [Suspect]
     Indication: PRURITUS
     Dosage: 80 mg, qd
     Route: 048
     Dates: start: 201109
  2. TARGRETIN [Suspect]
     Indication: MYCOSIS FUNGOIDES
     Dosage: 300 mg/m2, qd
     Dates: start: 200911, end: 20111205
  3. ROFERON-A [Suspect]
     Indication: MYCOSIS FUNGOIDES
     Dosage: MIU
     Dates: start: 200911
  4. LEVOTHYROX [Concomitant]
     Dosage: 200 ?g, qd
  5. LAROXYL [Concomitant]
     Dosage: 10 mg, qd
  6. LEXOMIL [Concomitant]
     Dosage: 3 intakes
  7. XERIAL 50 [Concomitant]
     Dosage: 1 DF, qd
  8. NUTRITIONAL SUPPLEMENTS [Concomitant]

REACTIONS (3)
  - Dehydration [Fatal]
  - Drug interaction [Fatal]
  - Off label use [Fatal]
